FAERS Safety Report 6727069-3 (Version None)
Quarter: 2010Q2

REPORT INFORMATION
  Report Type: 
  Country: None (occurrence: None)
  Receive Date: 20100517
  Receipt Date: 20100506
  Transmission Date: 20101027
  Serious: Yes (Other)
  Sender: FDA-Public Use
  Company Number: US-BAYER-201021767NA

PATIENT
  Age: 42 Year
  Sex: Female

DRUGS (1)
  1. MIRENA [Suspect]
     Indication: DRUG USE FOR UNKNOWN INDICATION
     Dosage: FREQUENCY: CONTINUOUS
     Route: 015
     Dates: start: 20090116

REACTIONS (6)
  - AMENORRHOEA [None]
  - LIVER DISORDER [None]
  - PAIN [None]
  - URINE COLOUR ABNORMAL [None]
  - VAGINAL HAEMORRHAGE [None]
  - YELLOW SKIN [None]
